FAERS Safety Report 7677426-6 (Version None)
Quarter: 2011Q3

REPORT INFORMATION
  Report Type: 
  Country: None (occurrence: None)
  Receive Date: 20110811
  Receipt Date: 20100907
  Transmission Date: 20111222
  Serious: No
  Sender: FDA-Public Use
  Company Number: US-BRISTOL-MYERS SQUIBB COMPANY-15270424

PATIENT

DRUGS (1)
  1. REYATAZ [Suspect]
     Indication: ANTIRETROVIRAL THERAPY

REACTIONS (2)
  - PRURITUS [None]
  - BLOOD ALKALINE PHOSPHATASE INCREASED [None]
